FAERS Safety Report 7171811-7 (Version None)
Quarter: 2010Q4

REPORT INFORMATION
  Report Type: 
  Country: None (occurrence: None)
  Receive Date: 20101217
  Receipt Date: 20100127
  Transmission Date: 20110411
  Serious: Yes (Other)
  Sender: FDA-Public Use
  Company Number: US-AMGEN-TCS389076

PATIENT

DRUGS (7)
  1. ENBREL [Suspect]
     Indication: RHEUMATOID ARTHRITIS
     Dosage: 50 MG, QWK
     Route: 058
     Dates: start: 20091120
  2. PREDNISONE [Concomitant]
     Dosage: 5 MG, QD
  3. DEXTROPROPOXYPHENE NAPSILATE W/ ACETAMINOPHEN [Concomitant]
  4. ERGOCALCIFEROL [Concomitant]
  5. AXOTAL [Concomitant]
  6. CYCLOBENZAPRINE HCL [Concomitant]
  7. ACETAMINOPHEN AND HYDROCODONE BITARTRATE [Concomitant]

REACTIONS (11)
  - ANXIETY [None]
  - BODY TEMPERATURE INCREASED [None]
  - CELLULITIS [None]
  - COSTOCHONDRITIS [None]
  - EAR PAIN [None]
  - FIBROMYALGIA [None]
  - HEADACHE [None]
  - LYME DISEASE [None]
  - MENIERE'S DISEASE [None]
  - RHEUMATOID ARTHRITIS [None]
  - SLEEP DISORDER [None]
